FAERS Safety Report 10857612 (Version 1)
Quarter: 2015Q1

REPORT INFORMATION
  Report Type: Spontaneous
  Country: US (occurrence: US)
  Receive Date: 20150223
  Receipt Date: 20150223
  Transmission Date: 20150721
  Serious: No
  Sender: FDA-Public Use
  Company Number: US-ENDO PHARMACEUTICALS INC.-HCDA20140154

PATIENT
  Sex: Female

DRUGS (2)
  1. HYDROCODONE BITARTRATE/APAP TABLETS 7.5MG/300MG [Suspect]
     Active Substance: ACETAMINOPHEN\HYDROCODONE BITARTRATE
     Indication: PAIN
     Dosage: 7.5 MG/300 MG
     Route: 048
     Dates: start: 201411, end: 201411
  2. HYDROCODONE BITARTRATE-APAP [Concomitant]
     Indication: PAIN

REACTIONS (5)
  - Headache [Recovered/Resolved]
  - Gastrointestinal disorder [Recovered/Resolved]
  - Drug ineffective [Recovered/Resolved]
  - Nausea [Recovered/Resolved]
  - Chills [Recovered/Resolved]

NARRATIVE: CASE EVENT DATE: 201411
